FAERS Safety Report 9662697 (Version 2)
Quarter: 2013Q4

REPORT INFORMATION
  Report Type: Spontaneous
  Country: US (occurrence: US)
  Receive Date: 20131031
  Receipt Date: 20131031
  Transmission Date: 20140711
  Serious: Yes (Other)
  Sender: FDA-Public Use
  Company Number: US-NAPPMUNDI-USA-2010-0072004

PATIENT
  Sex: Female

DRUGS (1)
  1. OXYCONTIN (NDA 22-272) [Suspect]
     Indication: PAIN
     Dosage: 40 MG, Q12H

REACTIONS (6)
  - Hallucination [Recovered/Resolved]
  - Hallucination, visual [Unknown]
  - Loss of consciousness [Unknown]
  - Road traffic accident [Unknown]
  - Rash [Unknown]
  - Confusional state [Recovered/Resolved]
